FAERS Safety Report 15100193 (Version 2)
Quarter: 2018Q3

REPORT INFORMATION
  Report Type: Report from Study
  Country: IT (occurrence: IT)
  Receive Date: 20180703
  Receipt Date: 20180713
  Transmission Date: 20181010
  Serious: Yes (Hospitalization)
  Sender: FDA-Public Use
  Company Number: IT-TEVA-2018-IT-918561

PATIENT
  Age: 46 Year
  Sex: Female

DRUGS (4)
  1. LAMICTAL [Suspect]
     Active Substance: LAMOTRIGINE
     Indication: SUICIDE ATTEMPT
     Route: 048
     Dates: start: 20171226, end: 20171226
  2. ESCITALOPRAM OXALATE. [Suspect]
     Active Substance: ESCITALOPRAM OXALATE
     Indication: SUICIDE ATTEMPT
     Route: 048
     Dates: start: 20171226, end: 20171226
  3. LEXOTAN 2,5 MG/ML GOCCE ORALI SOLUZIONE [Suspect]
     Active Substance: BROMAZEPAM
     Indication: SUICIDE ATTEMPT
     Route: 048
     Dates: start: 20171226, end: 20171226
  4. EFEXOR 37,5 MG CAPSULE RIGIDE A RILASCIO PROLUNGATO [Suspect]
     Active Substance: VENLAFAXINE HYDROCHLORIDE
     Indication: SUICIDE ATTEMPT
     Route: 048
     Dates: start: 20171226, end: 20171226

REACTIONS (5)
  - Drug abuse [Recovered/Resolved]
  - Suicide attempt [None]
  - Blood gases abnormal [Recovered/Resolved]
  - Muscle rigidity [Recovered/Resolved]
  - Sopor [Recovered/Resolved]

NARRATIVE: CASE EVENT DATE: 20171226
